FAERS Safety Report 4872474-3 (Version None)
Quarter: 2005Q4

REPORT INFORMATION
  Report Type: 
  Country: None (occurrence: None)
  Receive Date: 20051201
  Receipt Date: 20050804
  Transmission Date: 20060501
  Serious: No
  Sender: FDA-Public Use
  Company Number: 2005PV000829

PATIENT
  Age: 61 Year
  Sex: Female
  Weight: 100.6985 kg

DRUGS (13)
  1. BYETTA [Suspect]
     Indication: DIABETES MELLITUS NON-INSULIN-DEPENDENT
     Dosage: 10 MCG;  BID; SC; 5 MCG; BID; SC
     Route: 058
     Dates: start: 20050614, end: 20050713
  2. BYETTA [Suspect]
     Indication: DIABETES MELLITUS NON-INSULIN-DEPENDENT
     Dosage: 10 MCG;  BID; SC; 5 MCG; BID; SC
     Route: 058
     Dates: start: 20050714
  3. METFORMIN HCL [Concomitant]
  4. GLIPIZIDE [Concomitant]
  5. FOLIC ACID [Concomitant]
  6. METHOTREXATE [Concomitant]
  7. PIROXICAM [Concomitant]
  8. PLAVIX [Concomitant]
  9. LOVASTATIN [Concomitant]
  10. MICARDIS HCT [Concomitant]
  11. ADVAIR DISKUS 100/50 [Concomitant]
  12. DRAMAMINE [Concomitant]
  13. LANTUS [Concomitant]

REACTIONS (4)
  - BLOOD GLUCOSE INCREASED [None]
  - DIARRHOEA [None]
  - VOMITING [None]
  - WEIGHT DECREASED [None]
